FAERS Safety Report 8869820 (Version 1)
Quarter: 2012Q4

REPORT INFORMATION
  Report Type: 
  Country: CN (occurrence: CN)
  Receive Date: 20121028
  Receipt Date: 20121028
  Transmission Date: 20130627
  Serious: Yes (Hospitalization, Other)
  Sender: FDA-Public Use
  Company Number: CN-JNJFOC-20121014529

PATIENT

DRUGS (2)
  1. REMICADE [Suspect]
     Indication: ANKYLOSING SPONDYLITIS
     Dosage: dosing at week 0, 2 and at 6 for 3 times in total
     Route: 042
  2. METHOTREXATE [Concomitant]
     Dosage: dosing 10 to 15 mg per time
     Route: 048

REACTIONS (5)
  - Escherichia infection [Unknown]
  - Skin ulcer [Recovered/Resolved]
  - Pachydermoperiostosis [Unknown]
  - Skin exfoliation [Recovering/Resolving]
  - Dermatitis [Recovered/Resolved]
